FAERS Safety Report 6330699-4 (Version None)
Quarter: 2009Q3

REPORT INFORMATION
  Report Type: 
  Country: None (occurrence: None)
  Receive Date: 20090827
  Receipt Date: 20090817
  Transmission Date: 20100115
  Serious: Yes (Hospitalization)
  Sender: FDA-Public Use
  Company Number: US-JNJFOC-20090805561

PATIENT
  Sex: Female

DRUGS (17)
  1. CONCERTA [Suspect]
     Indication: DRUG USE FOR UNKNOWN INDICATION
  2. WELLBUTRIN [Suspect]
     Route: 048
  3. WELLBUTRIN [Suspect]
     Indication: DEPRESSION
     Route: 048
  4. ZONEGRAN [Suspect]
     Indication: DRUG USE FOR UNKNOWN INDICATION
     Route: 065
  5. SARAFEM [Suspect]
     Indication: DRUG USE FOR UNKNOWN INDICATION
     Route: 065
  6. BUPROPION HYDROCHLORIDE [Suspect]
     Route: 048
  7. BUPROPION HYDROCHLORIDE [Suspect]
     Indication: DEPRESSION
     Route: 048
  8. LAMICTAL [Concomitant]
     Indication: BIPOLAR DISORDER
     Route: 048
  9. CYMBALTA [Concomitant]
     Indication: DRUG USE FOR UNKNOWN INDICATION
     Route: 065
  10. PRISTIQ [Concomitant]
     Indication: DRUG USE FOR UNKNOWN INDICATION
     Route: 065
  11. PROZAC [Concomitant]
     Indication: DRUG USE FOR UNKNOWN INDICATION
     Route: 065
  12. ADDERALL 10 [Concomitant]
     Route: 065
  13. ORTHO CYCLEN-28 [Concomitant]
     Route: 065
  14. LORAZEPAM [Concomitant]
     Route: 065
  15. ALPRAZOLAM [Concomitant]
     Route: 065
  16. CLONAZEPAM [Concomitant]
     Route: 065
  17. NORETHINDRONE AND ETHINYL ESTRADIOL [Concomitant]
     Indication: CONTRACEPTION
     Route: 065

REACTIONS (1)
  - SUICIDAL IDEATION [None]
